FAERS Safety Report 15939188 (Version 2)
Quarter: 2019Q2

REPORT INFORMATION
  Report Type: Spontaneous
  Country: US (occurrence: US)
  Receive Date: 20190208
  Receipt Date: 20190514
  Transmission Date: 20190711
  Serious: No
  Sender: FDA-Public Use
  Company Number: US-PFIZER INC-2019051181

PATIENT
  Sex: Female

DRUGS (29)
  1. PROAIR [FLUTICASONE PROPIONATE] [Suspect]
     Active Substance: FLUTICASONE PROPIONATE
     Dosage: UNK
  2. PERCOCET [Suspect]
     Active Substance: ACETAMINOPHEN\OXYCODONE HYDROCHLORIDE
     Dosage: UNK
  3. PARACETAMOL ACCORD HEALTHCARE [Suspect]
     Active Substance: ACETAMINOPHEN
     Dosage: UNK
  4. DARVON [BETAHISTINE MESILATE] [Suspect]
     Active Substance: BETAHISTINE MESILATE
     Dosage: UNK
  5. NUBAIN [Suspect]
     Active Substance: NALBUPHINE HYDROCHLORIDE
     Dosage: UNK
  6. OXYCODONE [Suspect]
     Active Substance: OXYCODONE
     Dosage: UNK
  7. SULFASALAZINE. [Suspect]
     Active Substance: SULFASALAZINE
     Dosage: UNK
  8. BRIMONIDINE [Suspect]
     Active Substance: BRIMONIDINE TARTRATE
     Dosage: UNK
  9. DURADRIN [Suspect]
     Active Substance: ACETAMINOPHEN\DICHLORALPHENAZONE\ISOMETHEPTENE MUCATE
     Dosage: UNK
  10. FAMOTIDINE. [Suspect]
     Active Substance: FAMOTIDINE
     Dosage: UNK
  11. PLAQUENIL [Suspect]
     Active Substance: HYDROXYCHLOROQUINE SULFATE
     Dosage: UNK
  12. IODINE. [Suspect]
     Active Substance: IODINE
     Dosage: UNK
  13. TEMAZEPAM. [Suspect]
     Active Substance: TEMAZEPAM
     Dosage: UNK
  14. MORPHINE SULFATE. [Suspect]
     Active Substance: MORPHINE SULFATE
     Dosage: UNK
  15. VALIUM [Suspect]
     Active Substance: DIAZEPAM
     Dosage: UNK
  16. MELOXICAM. [Suspect]
     Active Substance: MELOXICAM
     Dosage: UNK
  17. SIMVASTATIN. [Suspect]
     Active Substance: SIMVASTATIN
     Dosage: UNK
  18. TETRACYCLINE HCL [Suspect]
     Active Substance: TETRACYCLINE HYDROCHLORIDE
     Dosage: UNK
  19. MIDRIN [DICHLORALPHENAZONE;ISOMETHEPTENE MUCATE;PARACETAMOL] [Suspect]
     Active Substance: ACETAMINOPHEN\DICHLORALPHENAZONE\ISOMETHEPTENE
     Dosage: UNK
  20. DEMEROL [Suspect]
     Active Substance: MEPERIDINE HYDROCHLORIDE
     Dosage: UNK
  21. ADVAIR HFA [Suspect]
     Active Substance: FLUTICASONE PROPIONATE\SALMETEROL XINAFOATE
     Dosage: UNK
  22. PILOCARPINE HCL [Suspect]
     Active Substance: PILOCARPINE HYDROCHLORIDE
     Dosage: UNK
  23. CELEBREX [Suspect]
     Active Substance: CELECOXIB
     Dosage: UNK
  24. CEVIMELINE. [Suspect]
     Active Substance: CEVIMELINE
     Dosage: UNK
  25. CODEINE [Suspect]
     Active Substance: CODEINE
     Dosage: UNK
  26. DARVOCET [Suspect]
     Active Substance: ACETAMINOPHEN\PROPOXYPHENE HYDROCHLORIDE
     Dosage: UNK
  27. METOLAZONE. [Suspect]
     Active Substance: METOLAZONE
     Dosage: UNK
  28. TOVIAZ [Suspect]
     Active Substance: FESOTERODINE FUMARATE
     Dosage: UNK
  29. LODINE [Suspect]
     Active Substance: ETODOLAC
     Dosage: UNK

REACTIONS (1)
  - Drug hypersensitivity [Unknown]
